FAERS Safety Report 7726569-7 (Version None)
Quarter: 2011Q3

REPORT INFORMATION
  Report Type: 
  Country: None (occurrence: None)
  Receive Date: 20110902
  Receipt Date: 20110824
  Transmission Date: 20111222
  Serious: Yes (Hospitalization, Other)
  Sender: FDA-Public Use
  Company Number: PHHY2011JP70496

PATIENT
  Age: 49 Year
  Sex: Male

DRUGS (8)
  1. TEGRETOL [Suspect]
     Dosage: 1800 MG, DAILY
  2. TEGRETOL [Suspect]
     Dosage: 280 MG, DAILY
  3. LAMOTRIGINE [Concomitant]
     Dosage: 250 MG, PER DAY
  4. TOPIRAMATE [Concomitant]
     Dosage: 50 MG, PER DAY
  5. GABAPENTIN [Concomitant]
     Dosage: 1800 MG, PER DAY
     Dates: start: 20080101
  6. GABAPENTIN [Concomitant]
     Dosage: 1200, MG
  7. MYSTAN [Concomitant]
     Dosage: 20 MG, PER DAY
     Dates: start: 20080101
  8. TEGRETOL [Suspect]
     Indication: EPILEPSY
     Dosage: 1000 MG, DAILY
     Dates: start: 20080101

REACTIONS (8)
  - PYREXIA [None]
  - NASOPHARYNGITIS [None]
  - HYPONATRAEMIA [None]
  - CONVULSION [None]
  - MEMORY IMPAIRMENT [None]
  - DISTURBANCE IN ATTENTION [None]
  - GAIT DISTURBANCE [None]
  - SOMNOLENCE [None]
